FAERS Safety Report 10230442 (Version 1)
Quarter: 2014Q2

REPORT INFORMATION
  Report Type: Spontaneous
  Country: GB (occurrence: GB)
  Receive Date: 20140611
  Receipt Date: 20140611
  Transmission Date: 20141212
  Serious: Yes (Hospitalization)
  Sender: FDA-Public Use
  Company Number: GB-TEVA-486812ISR

PATIENT
  Age: 70 Year
  Sex: Female

DRUGS (10)
  1. ATORVASTATIN [Suspect]
     Indication: MYOCARDIAL ISCHAEMIA
     Dosage: 80 MILLIGRAM DAILY; AT NIGHT. ATORVASTATIN STOPPED BY HOSPITAL.
     Route: 048
     Dates: end: 20140522
  2. COLCHICINE [Interacting]
     Indication: GOUT
     Route: 048
     Dates: start: 20140424, end: 20140515
  3. AMITRIPTYLINE [Concomitant]
  4. FUROSEMIDE [Concomitant]
  5. LISINOPRIL [Concomitant]
  6. OMEPRAZOLE [Concomitant]
  7. PREGABALIN [Concomitant]
  8. WARFARIN [Concomitant]
  9. BETAHISTINE [Concomitant]
     Dosage: 48 MILLIGRAM DAILY;
  10. AMIODARONE [Concomitant]

REACTIONS (8)
  - Myalgia [Unknown]
  - Tremor [Unknown]
  - Renal failure acute [Unknown]
  - Liver function test abnormal [Recovering/Resolving]
  - Labelled drug-drug interaction medication error [Unknown]
  - Diarrhoea [Recovered/Resolved]
  - Vomiting [Recovered/Resolved]
  - Myopathy [Recovered/Resolved]
